FAERS Safety Report 6577670-5 (Version None)
Quarter: 2010Q1

REPORT INFORMATION
  Report Type: 
  Country: None (occurrence: None)
  Receive Date: 20100211
  Receipt Date: 20100203
  Transmission Date: 20100710
  Serious: Yes (Hospitalization)
  Sender: FDA-Public Use
  Company Number: PHHY2010DE06392

PATIENT
  Sex: Female
  Weight: 68 kg

DRUGS (8)
  1. ALISKIREN ALI+ [Suspect]
     Indication: HYPERTENSION
     Dosage: 150 MG, QD
     Dates: start: 20080101, end: 20081222
  2. BIPRETERAX [Suspect]
     Dosage: UNK
     Dates: end: 20081216
  3. AMLODIPINE [Concomitant]
     Dosage: UNK
     Dates: end: 20090109
  4. METOHEXAL [Concomitant]
  5. SIFROL [Concomitant]
  6. FENOFIBRAT [Concomitant]
  7. ANTIDEPRESSANTS [Concomitant]
     Indication: DEPRESSION
  8. ALPHA-RECEPTOR BLOCKER [Concomitant]
     Dosage: UNK
     Dates: start: 20090710

REACTIONS (1)
  - HYPERTENSIVE CRISIS [None]
